FAERS Safety Report 9433885 (Version 2)
Quarter: 2013Q4

REPORT INFORMATION
  Report Type: Spontaneous
  Country: GB (occurrence: GB)
  Receive Date: 20130801
  Receipt Date: 20131113
  Transmission Date: 20140711
  Serious: Yes (Hospitalization, Other)
  Sender: FDA-Public Use
  Company Number: PHHY2013GB079230

PATIENT
  Age: 52 Year
  Sex: Female
  Weight: 91 kg

DRUGS (3)
  1. AMLODIPINE BESYLATE [Suspect]
     Indication: HYPERTENSION
     Dosage: 10 MG, QD
     Route: 048
     Dates: start: 20021025
  2. BENDROFLUMETHIAZIDE [Suspect]
     Dosage: 2.5 MG, UNK
  3. AMITRIPTYLINE [Concomitant]
     Dosage: 10 MG, UNK

REACTIONS (9)
  - Emotional distress [Unknown]
  - Hyperkeratosis [Not Recovered/Not Resolved]
  - Dehydration [Unknown]
  - Skin haemorrhage [Not Recovered/Not Resolved]
  - Lip swelling [Not Recovered/Not Resolved]
  - Skin exfoliation [Not Recovered/Not Resolved]
  - Skin fissures [Not Recovered/Not Resolved]
  - Dizziness [Not Recovered/Not Resolved]
  - Paraesthesia [Unknown]
